FAERS Safety Report 10283732 (Version 1)
Quarter: 2014Q3

REPORT INFORMATION
  Report Type: Spontaneous
  Country: US (occurrence: None)
  Receive Date: 20140703
  Receipt Date: 20140703
  Transmission Date: 20150326
  Serious: Yes (Death)
  Sender: FDA-Public Use
  Company Number: None

PATIENT
  Age: 46 Year
  Sex: Female
  Weight: 56.7 kg

DRUGS (2)
  1. SYNTHROID/LEVOTHYROXINE [Concomitant]
  2. ANTABUSE [Suspect]
     Active Substance: DISULFIRAM
     Indication: ALCOHOLISM
     Dosage: YEARS
     Route: 048

REACTIONS (3)
  - Intentional self-injury [None]
  - Gun shot wound [None]
  - Alcohol use [None]

NARRATIVE: CASE EVENT DATE: 20140628
